FAERS Safety Report 20699004 (Version 1)
Quarter: 2022Q2

REPORT INFORMATION
  Report Type: Report from Study
  Country: MX (occurrence: MX)
  Receive Date: 20220412
  Receipt Date: 20220412
  Transmission Date: 20220720
  Serious: Yes (Other)
  Sender: FDA-Public Use
  Company Number: MX-NOVARTISPH-NVSC2022MX082491

PATIENT
  Sex: Male

DRUGS (3)
  1. METFORMIN HYDROCHLORIDE\VILDAGLIPTIN [Suspect]
     Active Substance: METFORMIN HYDROCHLORIDE\VILDAGLIPTIN
     Indication: Diabetes mellitus
     Dosage: 1 DOSAGE FORM, BID
     Route: 065
  2. METFORMIN HYDROCHLORIDE\VILDAGLIPTIN [Suspect]
     Active Substance: METFORMIN HYDROCHLORIDE\VILDAGLIPTIN
     Dosage: 1 DOSAGE FORM, (1 IN THE MORNING, 1 AT NOON, AND ? AT NIGHT)
     Route: 065
  3. DIOVAN [Suspect]
     Active Substance: VALSARTAN
     Indication: Product used for unknown indication
     Dosage: 1 DOSAGE FORM, IN THE MORNING
     Route: 048

REACTIONS (3)
  - Deafness [Unknown]
  - Blood glucose increased [Unknown]
  - Off label use [Unknown]
